FAERS Safety Report 6011487-5 (Version None)
Quarter: 2008Q4

REPORT INFORMATION
  Report Type: 
  Country: None (occurrence: None)
  Receive Date: 20081217
  Receipt Date: 20081217
  Transmission Date: 20090506
  Serious: Yes (Life-Threatening, Hospitalization)
  Sender: FDA-Public Use
  Company Number: None

PATIENT
  Sex: Female
  Weight: 109.3169 kg

DRUGS (18)
  1. IBUPROFEN TABLETS [Suspect]
     Indication: DENTAL DISCOMFORT
     Dosage: 600 MG TID-MEALS PO
     Route: 048
     Dates: start: 20080511, end: 20080513
  2. NICOTINE [Concomitant]
  3. LISINOPRIL [Concomitant]
  4. FUROSEMIDE [Concomitant]
  5. LANTUS [Concomitant]
  6. CLONIDINE [Concomitant]
  7. ATORVASTATIN CALCIUM [Concomitant]
  8. GABAPENTIN [Concomitant]
  9. DEPAKOTE [Concomitant]
  10. OMEPRAZOLE [Concomitant]
  11. ISOSORBIDE MONONITRATE [Concomitant]
  12. CALCIUM CARB W/ VIT D [Concomitant]
  13. ALBUTEROL [Concomitant]
  14. DOCUSATE SODIUM [Concomitant]
  15. ARIPIPRAZOLE [Concomitant]
  16. BACTRIM DS [Concomitant]
  17. ACETAMINOPHEN [Concomitant]
  18. DIPHENHYDRAMINE HCL [Concomitant]

REACTIONS (1)
  - RENAL FAILURE CHRONIC [None]
